FAERS Safety Report 24958935 (Version 1)
Quarter: 2025Q1

REPORT INFORMATION
  Report Type: Other
  Country: PE (occurrence: PE)
  Receive Date: 20250212
  Receipt Date: 20250212
  Transmission Date: 20250408
  Serious: Yes (Death, Hospitalization, Other)
  Sender: ESJAY PHARMA
  Company Number: PE-ESJAY PHARMA-000025

PATIENT
  Age: 72 Year
  Sex: Female

DRUGS (2)
  1. FUROSEMIDE [Suspect]
     Active Substance: FUROSEMIDE
     Indication: Oedema
  2. ALBUMIN HUMAN [Concomitant]
     Active Substance: ALBUMIN HUMAN
     Indication: Oedema

REACTIONS (2)
  - Cardiac arrest [Fatal]
  - Drug ineffective [Fatal]
